FAERS Safety Report 8914535 (Version 1)
Quarter: 2012Q4

REPORT INFORMATION
  Report Type: 
  Country: DK (occurrence: FR)
  Receive Date: 20121116
  Receipt Date: 20121116
  Transmission Date: 20130627
  Serious: Yes (Other)
  Sender: FDA-Public Use
  Company Number: FR-FRI-1000040391

PATIENT
  Sex: Male

DRUGS (1)
  1. ESCITALOPRAM [Suspect]
     Dosage: 1 DF
     Route: 048
     Dates: start: 20081124, end: 200902

REACTIONS (3)
  - Aggression [Recovered/Resolved]
  - Physical assault [Recovered/Resolved]
  - Amnesia [Recovered/Resolved]
